FAERS Safety Report 10771648 (Version 3)
Quarter: 2015Q2

REPORT INFORMATION
  Report Type: Spontaneous
  Country: US (occurrence: US)
  Receive Date: 20150206
  Receipt Date: 20150406
  Transmission Date: 20150821
  Serious: Yes (Hospitalization, Other)
  Sender: FDA-Public Use
  Company Number: US-ASTELLAS-2015US003473

PATIENT
  Age: 41 Year
  Sex: Male

DRUGS (2)
  1. PROGRAF [Suspect]
     Active Substance: TACROLIMUS\TACROLIMUS ANHYDROUS
     Indication: HEART TRANSPLANT
     Dosage: 0.5 MG, ONCE DAILY (EVERY MORNING)
     Route: 048
     Dates: start: 20150107
  2. PROGRAF [Suspect]
     Active Substance: TACROLIMUS\TACROLIMUS ANHYDROUS
     Indication: HEART TRANSPLANT
     Dosage: 1 MG, ONCE DAILY  (EVERY EVENING)
     Route: 048
     Dates: start: 20150107

REACTIONS (5)
  - Cardiac procedure complication [Unknown]
  - Transplant rejection [Unknown]
  - Groin infection [Unknown]
  - Cardiac pseudoaneurysm [Unknown]
  - Treatment noncompliance [Unknown]
